FAERS Safety Report 9404326 (Version 1)
Quarter: 2013Q3

REPORT INFORMATION
  Report Type: Spontaneous
  Country: US (occurrence: None)
  Receive Date: 20130715
  Receipt Date: 20130715
  Transmission Date: 20140515
  Serious: Yes (Death)
  Sender: FDA-Public Use
  Company Number: B0906833A

PATIENT
  Sex: 0

DRUGS (3)
  1. TOPOTECAN [Suspect]
     Indication: CERVIX CARCINOMA RECURRENT
     Dosage: .75 MG/M2 / CYCLIC / UNKNOWN
  2. CISPLATIN [Suspect]
     Indication: CERVIX CARCINOMA RECURRENT
     Dosage: 50 MG/M2 / CYCLIC / UNKNOWN
  3. BEVACIZUMAB [Suspect]
     Indication: CERVIX CARCINOMA RECURRENT
     Dosage: 15 MG/KG / CYCLIC / UNKNOWN

REACTIONS (1)
  - Circulatory collapse [None]
